FAERS Safety Report 4603610-1 (Version None)
Quarter: 2005Q1

REPORT INFORMATION
  Report Type: 
  Country: None (occurrence: None)
  Receive Date: 20050310
  Receipt Date: 20050301
  Transmission Date: 20050727
  Serious: Yes (Life-Threatening, Hospitalization)
  Sender: FDA-Public Use
  Company Number: DE-BOEHRINGER INGELHEIM PHARMMACEUTICALS, INC.-2005-DE-00808DE

PATIENT
  Sex: Female
  Weight: 90 kg

DRUGS (4)
  1. MICARDIS [Suspect]
     Indication: HYPERTENSION
     Route: 048
     Dates: start: 20041222
  2. ACC [Suspect]
     Route: 048
  3. NEXIUM [Concomitant]
     Indication: REFLUX OESOPHAGITIS
     Dosage: EVERY SECOND DAY
     Dates: start: 20031013
  4. NEOTRI [Concomitant]
     Indication: HYPERTENSION
     Dates: end: 20041223

REACTIONS (1)
  - ANGIONEUROTIC OEDEMA [None]
